FAERS Safety Report 16564444 (Version 3)
Quarter: 2019Q4

REPORT INFORMATION
  Report Type: Spontaneous
  Country: DE (occurrence: DE)
  Receive Date: 20190712
  Receipt Date: 20191106
  Transmission Date: 20200122
  Serious: Yes (Life-Threatening, Other)
  Sender: FDA-Public Use
  Company Number: DE-DRREDDYS-USA/GER/19/0111918

PATIENT
  Age: 26 Year
  Sex: Female

DRUGS (3)
  1. METOPROLOL SUCCINATE. [Concomitant]
     Active Substance: METOPROLOL SUCCINATE
     Indication: CARDIAC FAILURE CONGESTIVE
  2. IMMUNOGLOBULINS [Concomitant]
     Indication: CARDIAC FAILURE CONGESTIVE
  3. RAMIPRIL. [Suspect]
     Active Substance: RAMIPRIL
     Indication: CARDIAC FAILURE CONGESTIVE

REACTIONS (1)
  - Fibrinous bronchitis [Recovered/Resolved]
